FAERS Safety Report 9374975 (Version 1)
Quarter: 2013Q2

REPORT INFORMATION
  Report Type: Spontaneous
  Country: US (occurrence: US)
  Receive Date: 20130628
  Receipt Date: 20130628
  Transmission Date: 20140414
  Serious: No
  Sender: FDA-Public Use
  Company Number: PHEH2013US013566

PATIENT
  Sex: Male

DRUGS (18)
  1. TASIGNA [Suspect]
     Indication: LEUKAEMIA
     Dosage: 2 MG, BID
     Route: 048
     Dates: start: 20130531
  2. METOPROLOL [Concomitant]
     Dosage: 0.5 DF, BID
     Route: 048
  3. FOSMIDEX [Concomitant]
     Dosage: 20 MG, BID
     Route: 048
  4. PLAVIX [Concomitant]
     Dosage: 75 MG, QD
     Route: 048
  5. ALBUTEROL [Concomitant]
     Dosage: 300 MG, DAILY
  6. BUPROPION HCL [Concomitant]
     Dosage: 150 MG, BID
     Route: 048
  7. ZOLPIDEM TARTRATE [Concomitant]
     Dosage: 5 MG, QD
     Route: 048
  8. LOSARTAN [Concomitant]
     Dosage: 100 MG, QD
     Route: 048
  9. CLOPIDOGREL BISULFATE [Concomitant]
     Dosage: 75 MG, QD
  10. ASPIRIN [Concomitant]
     Dosage: 325 MG, QD
  11. POTASSIUM [Concomitant]
     Dosage: 20 MG, BID
  12. FOLIC ACID [Concomitant]
     Dosage: 800 MG, QD
  13. IRON [Concomitant]
     Dosage: 28 MG, QD
  14. MULTI-VIT [Concomitant]
  15. LORATADIN [Concomitant]
     Dosage: 10 MG, UNK
  16. MECLIZINE [Concomitant]
     Dosage: 25 MG, UNK
  17. NITROSTAT [Concomitant]
     Dosage: 0.4 MG, UNK
  18. CYCLOBENZAPRINE [Concomitant]
     Dosage: 10 MG, UNK

REACTIONS (4)
  - Asthenia [Unknown]
  - Arthralgia [Unknown]
  - Myalgia [Unknown]
  - Back pain [Unknown]
